FAERS Safety Report 16740101 (Version 1)
Quarter: 2019Q3

REPORT INFORMATION
  Report Type: Spontaneous
  Country: US (occurrence: US)
  Receive Date: 20190826
  Receipt Date: 20190826
  Transmission Date: 20191005
  Serious: No
  Sender: FDA-Public Use
  Company Number: US-ENDO PHARMACEUTICALS INC-2019-104459

PATIENT
  Sex: Female

DRUGS (1)
  1. OXYCODONE HYDROCHLORIDE, ACETAMINOPHEN [Suspect]
     Active Substance: ACETAMINOPHEN\OXYCODONE HYDROCHLORIDE
     Indication: PAIN
     Dosage: UNK UNK, UNKNOWN
     Route: 065
     Dates: start: 20190424

REACTIONS (10)
  - Dizziness [Unknown]
  - Speech disorder [Unknown]
  - Tinnitus [None]
  - Tremor [Unknown]
  - Adverse event [Unknown]
  - Drug ineffective [Unknown]
  - Headache [Unknown]
  - Dyspnoea [Unknown]
  - Chest discomfort [None]
  - Impaired driving ability [Unknown]
